FAERS Safety Report 9698258 (Version 1)
Quarter: 2013Q4

REPORT INFORMATION
  Report Type: Spontaneous
  Country: FR (occurrence: FR)
  Receive Date: 20131120
  Receipt Date: 20131120
  Transmission Date: 20140711
  Serious: Yes (Hospitalization)
  Sender: FDA-Public Use
  Company Number: FR-ALLERGAN-1317903US

PATIENT
  Age: 63 Year
  Sex: Female

DRUGS (9)
  1. BOTOX [Suspect]
     Indication: BLEPHAROSPASM
     Dosage: UNK, SINGLE
     Dates: start: 1996, end: 2004
  2. DYSPORT [Suspect]
     Indication: BLEPHAROSPASM
     Dosage: UNK
     Dates: start: 2004, end: 2012
  3. PARIET [Concomitant]
     Dosage: UNK
     Route: 048
     Dates: start: 2001
  4. XYZALL [Concomitant]
     Dosage: 5 MG, QD
     Route: 048
  5. POLARAMINE [Concomitant]
     Dosage: 1 DF, TID
     Route: 048
  6. GAVISCON [Concomitant]
     Dosage: UNK UNK, PRN
     Route: 048
  7. DOLIPRANE [Concomitant]
     Route: 048
  8. CODEINE [Concomitant]
     Route: 048
  9. TRAMADOL [Concomitant]

REACTIONS (3)
  - Urticaria chronic [Not Recovered/Not Resolved]
  - Erythema [Not Recovered/Not Resolved]
  - Drug ineffective [Unknown]
